FAERS Safety Report 19408475 (Version 1)
Quarter: 2021Q2

REPORT INFORMATION
  Report Type: Spontaneous
  Country: NL (occurrence: NL)
  Receive Date: 20210612
  Receipt Date: 20210612
  Transmission Date: 20210717
  Serious: Yes (Other)
  Sender: FDA-Public Use
  Company Number: NL-TAKEDA-2021TUS035952

PATIENT
  Age: 25 Year
  Sex: Female
  Weight: 48 kg

DRUGS (8)
  1. PRUCALOPRIDE [Suspect]
     Active Substance: PRUCALOPRIDE
     Indication: ANOREXIA NERVOSA
     Dosage: 2 MILLIGRAM, QD
     Route: 065
     Dates: start: 20210401
  2. MACROGOL [Concomitant]
     Active Substance: POLYETHYLENE GLYCOLS
     Dosage: 10 GRAM
     Route: 065
  3. TEMAZEPAM. [Concomitant]
     Active Substance: TEMAZEPAM
     Dosage: 10 MILLIGRAM
     Route: 065
  4. COLEX [Concomitant]
     Dosage: UNK
     Route: 065
  5. MODERNA COVID?19 VACCINE [Suspect]
     Active Substance: CX-024414
     Indication: COVID-19 IMMUNISATION
     Dosage: 1 DOSAGE FORM
     Route: 065
     Dates: start: 20210428
  6. ALGELDRAAT [Concomitant]
     Dosage: 724 MILLIGRAM
     Route: 065
  7. DISTIGMINE [Suspect]
     Active Substance: DISTIGMINE BROMIDE
     Indication: CONSTIPATION
     Dosage: 5 MILLIGRAM, QD
     Route: 065
     Dates: start: 20210401
  8. BISACODYL. [Concomitant]
     Active Substance: BISACODYL
     Dosage: 10 MILLIGRAM
     Route: 065

REACTIONS (12)
  - Headache [Not Recovered/Not Resolved]
  - Injection site inflammation [Recovering/Resolving]
  - Chills [Recovered/Resolved]
  - Arthralgia [Not Recovered/Not Resolved]
  - Visual impairment [Not Recovered/Not Resolved]
  - Dizziness [Not Recovered/Not Resolved]
  - Fatigue [Not Recovered/Not Resolved]
  - Glaucoma [Not Recovered/Not Resolved]
  - Injection site pain [Recovering/Resolving]
  - Diarrhoea [Not Recovered/Not Resolved]
  - Injection site swelling [Recovering/Resolving]
  - Malaise [Not Recovered/Not Resolved]

NARRATIVE: CASE EVENT DATE: 20210428
